FAERS Safety Report 5787513-5 (Version None)
Quarter: 2008Q2

REPORT INFORMATION
  Report Type: 
  Country: None (occurrence: None)
  Receive Date: 20080625
  Receipt Date: 20070927
  Transmission Date: 20081010
  Serious: No
  Sender: FDA-Public Use
  Company Number: US-ASTRAZENECA-2007UW22667

PATIENT
  Age: 7 Year
  Sex: Male

DRUGS (4)
  1. PULMICORT FLEXHALER [Suspect]
     Indication: ASTHMA
     Dosage: TWO PUFFS DAILY
     Route: 055
     Dates: start: 20070923
  2. ZYRTEC [Concomitant]
  3. XOPENEX [Concomitant]
  4. SINGULAIR [Concomitant]

REACTIONS (3)
  - AGGRESSION [None]
  - APHTHOUS STOMATITIS [None]
  - IRRITABILITY [None]
